FAERS Safety Report 5067337-7 (Version None)
Quarter: 2006Q3

REPORT INFORMATION
  Report Type: 
  Country: None (occurrence: None)
  Receive Date: 20060714
  Receipt Date: 20060609
  Transmission Date: 20061208
  Serious: No
  Sender: FDA-Public Use
  Company Number: 2006SP002390

PATIENT
  Age: 20 Year
  Sex: Male

DRUGS (3)
  1. LUNESTA [Suspect]
     Indication: INSOMNIA
     Dosage: PRN ORAL
     Route: 048
     Dates: start: 20060510
  2. LEXAPRO [Suspect]
     Dosage: 10 MG; ORAL
     Route: 048
     Dates: start: 20060503
  3. REMERON [Suspect]
     Dates: start: 20060503

REACTIONS (5)
  - DRUG INTERACTION [None]
  - DYSGEUSIA [None]
  - HYPOAESTHESIA [None]
  - MUSCLE SPASMS [None]
  - NERVOUSNESS [None]
